FAERS Safety Report 22314550 (Version 1)
Quarter: 2023Q2

REPORT INFORMATION
  Report Type: Other
  Country: DE (occurrence: None)
  Receive Date: 20230512
  Receipt Date: 20230512
  Transmission Date: 20230722
  Serious: No
  Sender: FDA-Public Use
  Company Number: DE-ROCHE-3347973

PATIENT
  Age: 37 Year
  Sex: Male

DRUGS (4)
  1. OCRELIZUMAB [Suspect]
     Active Substance: OCRELIZUMAB
     Indication: Relapsing multiple sclerosis
     Dosage: DOSE FREQUENCY: ONCE
     Route: 042
     Dates: start: 20220502
  2. OCRELIZUMAB [Suspect]
     Active Substance: OCRELIZUMAB
     Dosage: DOSE FREQUENCY: ONCE
     Route: 042
     Dates: start: 20221107
  3. CHOLECALCIFEROL [Concomitant]
     Active Substance: CHOLECALCIFEROL
     Indication: Vitamin D deficiency
     Dosage: DOSE: 20000?DOSE FREQUENCY: QS (EVERY WEEK)
     Route: 048
     Dates: start: 2021
  4. TIZANIDINE TEVA [Concomitant]
     Dosage: DOSE: 2?DOSE FREQUENCY: QD (EVERY DAY)
     Route: 048
     Dates: start: 20230206

REACTIONS (2)
  - Influenza [Recovered/Resolved]
  - Gastrointestinal infection [Recovered/Resolved]

NARRATIVE: CASE EVENT DATE: 20230401
